FAERS Safety Report 6460248-1 (Version None)
Quarter: 2009Q4

REPORT INFORMATION
  Report Type: 
  Country: None (occurrence: None)
  Receive Date: 20091130
  Receipt Date: 20091116
  Transmission Date: 20100525
  Serious: Yes (Hospitalization)
  Sender: FDA-Public Use
  Company Number: PHHY2009FR50672

PATIENT
  Sex: Female

DRUGS (9)
  1. VALSARTAN AND HYDROCHLOROTHIAZIDE [Suspect]
     Dosage: 1 TABLET DAILY
     Route: 048
     Dates: end: 20090915
  2. KARDEGIC [Concomitant]
     Dosage: 1 DF DAILY
  3. CLERIDIUM [Concomitant]
     Dosage: DF DAILY
  4. TANAKENE [Concomitant]
     Dosage: 3 DF DAILY
  5. AVLOCARDYL [Concomitant]
     Dosage: 2 DF DAILY
  6. SULFARLEM [Concomitant]
     Dosage: 3 DF DAILY
  7. IMPORTAL [Concomitant]
     Dosage: 2 DF DAILY
  8. DITROPAN [Concomitant]
     Dosage: 1.5 DF DAILY
  9. VOLTAREN DISPERS ^GEIGY^ [Concomitant]

REACTIONS (10)
  - C-REACTIVE PROTEIN INCREASED [None]
  - DISORIENTATION [None]
  - FALL [None]
  - GENERAL PHYSICAL HEALTH DETERIORATION [None]
  - HYPONATRAEMIA [None]
  - INFLAMMATION [None]
  - NAUSEA [None]
  - RENAL IMPAIRMENT [None]
  - SOMNOLENCE [None]
  - VOMITING [None]
